FAERS Safety Report 4846784-X (Version None)
Quarter: 2005Q4

REPORT INFORMATION
  Report Type: 
  Country: None (occurrence: None)
  Receive Date: 20051201
  Receipt Date: 20051119
  Transmission Date: 20060501
  Serious: Yes (Other)
  Sender: FDA-Public Use
  Company Number: 2005150631

PATIENT
  Age: 58 Year
  Sex: Female
  Weight: 77.5651 kg

DRUGS (22)
  1. TIKOSYN [Suspect]
     Indication: ATRIAL FIBRILLATION
     Dosage: 0.5 MG (0.25 MG, 2 IN 1 D)
     Dates: start: 20050701
  2. FLUNISOLIDE (FLUNISOLIDE) [Concomitant]
  3. ALBUTEROL [Concomitant]
  4. IPRATROPIUM BROMIDE [Concomitant]
  5. LEVODOPA-CARBIDOPA (CARBIDOPA, LEVODOPA) [Concomitant]
  6. CHLORPHENIRAMINE (CHLORPHENIRAMINE) [Concomitant]
  7. LOSARTAN POTASSIUM [Concomitant]
  8. DILTIAZEM [Concomitant]
  9. COUMADIN [Concomitant]
  10. INDAPAMIDE [Concomitant]
  11. VENLAFAXINE HCL [Concomitant]
  12. RANITIDINE HCL [Concomitant]
  13. ESTROGENS SOL/INJ [Concomitant]
  14. COPPER (COPPER) [Concomitant]
  15. IRON (IRON) [Concomitant]
  16. FOLIC ACID [Concomitant]
  17. MAGNESIUM OXIDE (MAGNESIUM OXIDE) [Concomitant]
  18. PANTOTHENIC ACID (PANTOTHENIC ACID) [Concomitant]
  19. MULTIVITAMIN [Concomitant]
  20. STOOL SOFTENER (DOCUSATE SODIUM) [Concomitant]
  21. METHYLPREDNISOLONE [Concomitant]
  22. VALACYCLOVIR HCL [Concomitant]

REACTIONS (28)
  - ASTHENIA [None]
  - ASTHMA [None]
  - ATRIAL FIBRILLATION [None]
  - ATRIAL TACHYCARDIA [None]
  - BLOOD MAGNESIUM DECREASED [None]
  - BLOOD POTASSIUM DECREASED [None]
  - BLOOD PRESSURE FLUCTUATION [None]
  - BUNDLE BRANCH BLOCK LEFT [None]
  - CARDIAC MURMUR [None]
  - CHEST PAIN [None]
  - DIZZINESS [None]
  - DRUG EFFECT DECREASED [None]
  - DYSPNOEA [None]
  - ELECTROCARDIOGRAM QT CORRECTED INTERVAL PROLONGED [None]
  - FATIGUE [None]
  - HEADACHE [None]
  - HEART RATE INCREASED [None]
  - HERPES SIMPLEX [None]
  - HOT FLUSH [None]
  - HYPERHIDROSIS [None]
  - HYPERTENSION [None]
  - INTERNATIONAL NORMALISED RATIO DECREASED [None]
  - PALPITATIONS [None]
  - SUPRAVENTRICULAR EXTRASYSTOLES [None]
  - SUPRAVENTRICULAR TACHYCARDIA [None]
  - VENTRICULAR EXTRASYSTOLES [None]
  - WEIGHT INCREASED [None]
  - WHEEZING [None]
